FAERS Safety Report 16107240 (Version 1)
Quarter: 2019Q1

REPORT INFORMATION
  Report Type: Spontaneous
  Country: US (occurrence: US)
  Receive Date: 20190322
  Receipt Date: 20190322
  Transmission Date: 20190418
  Serious: No
  Sender: FDA-Public Use
  Company Number: US-SA-2019SA076008

PATIENT
  Sex: Female

DRUGS (2)
  1. LOVENOX [Suspect]
     Active Substance: ENOXAPARIN SODIUM
     Dosage: UNK UNK, UNK
     Route: 065
  2. EMSAM [Suspect]
     Active Substance: SELEGILINE
     Dosage: UNK UNK, UNK
     Route: 065

REACTIONS (6)
  - Nausea [Unknown]
  - Headache [Unknown]
  - Malaise [Unknown]
  - Blood pressure increased [Unknown]
  - Pyrexia [Unknown]
  - Chest pain [Unknown]
